FAERS Safety Report 8227071-9 (Version None)
Quarter: 2012Q1

REPORT INFORMATION
  Report Type: 
  Country: None (occurrence: None)
  Receive Date: 20120322
  Receipt Date: 20120315
  Transmission Date: 20120608
  Serious: No
  Sender: FDA-Public Use
  Company Number: US-PFIZER INC-2012069691

PATIENT
  Age: 82 Year
  Sex: Female

DRUGS (12)
  1. CARAFATE [Concomitant]
     Dosage: UNK
  2. ASCORBIC ACID [Suspect]
     Dosage: UNK
     Dates: end: 20120101
  3. ATARAX [Concomitant]
     Dosage: UNK
  4. ATIVAN [Suspect]
     Dosage: UNK
     Dates: end: 20120101
  5. TOPROL-XL [Concomitant]
     Dosage: UNK
  6. ALDACTONE [Suspect]
     Dosage: UNK
     Dates: end: 20120101
  7. GABAPENTIN [Concomitant]
     Dosage: UNK
  8. LEXAPRO [Suspect]
     Indication: DEPRESSION
     Dosage: 10 MG, 2X/DAY
     Dates: end: 20120225
  9. LEXAPRO [Suspect]
     Dosage: 10 MG, 1X/DAY
  10. FISH OIL [Suspect]
     Dosage: UNK
     Dates: end: 20120101
  11. FUROSEMIDE [Suspect]
     Dosage: UNK
     Dates: end: 20120101
  12. PRILOSEC [Suspect]
     Dosage: UNK
     Dates: end: 20120304

REACTIONS (1)
  - PRURITUS [None]
